FAERS Safety Report 9959642 (Version 1)
Quarter: 2014Q1

REPORT INFORMATION
  Report Type: Spontaneous
  Country: US (occurrence: US)
  Receive Date: 20140305
  Receipt Date: 20140305
  Transmission Date: 20141002
  Serious: No
  Sender: FDA-Public Use
  Company Number: US-ABBVIE-13P-163-1101022-00

PATIENT
  Age: 49 Year
  Sex: Female
  Weight: 67.65 kg

DRUGS (4)
  1. HUMIRA [Suspect]
     Indication: CROHN^S DISEASE
     Dates: start: 20130329, end: 20130329
  2. HUMIRA [Suspect]
     Dates: start: 20130412, end: 20130412
  3. HUMIRA [Suspect]
     Dates: start: 20130426
  4. ZOFRAN [Concomitant]
     Indication: NAUSEA

REACTIONS (2)
  - Acne [Not Recovered/Not Resolved]
  - Rash [Not Recovered/Not Resolved]
